FAERS Safety Report 21357360 (Version 2)
Quarter: 2022Q3

REPORT INFORMATION
  Report Type: Spontaneous
  Country: US (occurrence: US)
  Receive Date: 20220921
  Receipt Date: 20220923
  Transmission Date: 20221027
  Serious: No
  Sender: FDA-Public Use
  Company Number: US-ELI_LILLY_AND_COMPANY-US202209006163

PATIENT
  Sex: Female

DRUGS (2)
  1. HUMULIN N [Suspect]
     Active Substance: INSULIN HUMAN
     Indication: Gestational diabetes
     Dosage: UNK
  2. BASAGLAR [Suspect]
     Active Substance: INSULIN GLARGINE
     Indication: Gestational diabetes
     Dosage: 8 U, UNKNOWN
     Route: 058

REACTIONS (2)
  - Pre-eclampsia [Not Recovered/Not Resolved]
  - Maternal exposure during pregnancy [Not Recovered/Not Resolved]
